FAERS Safety Report 9361370 (Version 1)
Quarter: 2013Q2

REPORT INFORMATION
  Report Type: Not Available
  Country: GB (occurrence: US)
  Receive Date: 20130621
  Receipt Date: 20130621
  Transmission Date: 20140414
  Serious: Yes (Other)
  Sender: FDA-Public Use
  Company Number: GB-FOUGERA-2013FO000172

PATIENT
  Age: 26 Year
  Sex: Female

DRUGS (30)
  1. DICLOFENAC SODIUM [Suspect]
     Indication: PAIN
  2. DICLOFENAC SODIUM [Suspect]
     Indication: HYPERMOBILITY SYNDROME
  3. DICLOFENAC SODIUM [Suspect]
     Indication: OSTEOARTHRITIS
  4. DICLOFENAC SODIUM [Suspect]
     Indication: OSTEOPOROSIS
  5. DICLOFENAC SODIUM [Suspect]
     Indication: MYALGIA
  6. DICLOFENAC SODIUM [Suspect]
     Indication: RHEUMATOID ARTHRITIS
  7. CO-COMADOL [Suspect]
     Indication: PAIN
  8. CO-COMADOL [Suspect]
     Indication: MYALGIA
  9. CO-COMADOL [Suspect]
     Indication: OSTEOPOROSIS
  10. CO-COMADOL [Suspect]
     Indication: OSTEOARTHRITIS
  11. CO-COMADOL [Suspect]
     Indication: RHEUMATOID ARTHRITIS
  12. CO-COMADOL [Suspect]
     Indication: HYPERMOBILITY SYNDROME
  13. LEFLUNOMIDE [Suspect]
     Indication: PAIN
  14. LEFLUNOMIDE [Suspect]
     Indication: MYALGIA
  15. LEFLUNOMIDE [Suspect]
     Indication: OSTEOPOROSIS
  16. LEFLUNOMIDE [Suspect]
     Indication: OSTEOARTHRITIS
  17. LEFLUNOMIDE [Suspect]
     Indication: RHEUMATOID ARTHRITIS
  18. LEFLUNOMIDE [Suspect]
     Indication: HYPERMOBILITY SYNDROME
  19. NAPROXEN [Suspect]
     Indication: PAIN
  20. NAPROXEN [Suspect]
     Indication: MYALGIA
  21. NAPROXEN [Suspect]
     Indication: OSTEOPOROSIS
  22. NAPROXEN [Suspect]
     Indication: OSTEOARTHRITIS
  23. NAPROXEN [Suspect]
     Indication: RHEUMATOID ARTHRITIS
  24. NAPROXEN [Suspect]
     Indication: HYPERMOBILITY SYNDROME
  25. TRAMADOL [Suspect]
     Indication: PAIN
  26. TRAMADOL [Suspect]
     Indication: MYALGIA
  27. TRAMADOL [Suspect]
     Indication: OSTEOPOROSIS
  28. TRAMADOL [Suspect]
     Indication: OSTEOARTHRITIS
  29. TRAMADOL [Suspect]
     Indication: RHEUMATOID ARTHRITIS
  30. TRAMADOL [Suspect]
     Indication: HYPERMOBILITY SYNDROME

REACTIONS (3)
  - Suicidal ideation [Unknown]
  - Off label use [Unknown]
  - Drug ineffective [None]
